FAERS Safety Report 6287515-9 (Version None)
Quarter: 2009Q3

REPORT INFORMATION
  Report Type: 
  Country: None (occurrence: None)
  Receive Date: 20090727
  Receipt Date: 20090715
  Transmission Date: 20100115
  Serious: Yes (Hospitalization)
  Sender: FDA-Public Use
  Company Number: 2008AL011330

PATIENT
  Age: 61 Year
  Sex: Female

DRUGS (21)
  1. DIGOXIN [Suspect]
     Indication: CARDIAC FAILURE CONGESTIVE
     Dosage: 0.125MG, UNK, PO
     Route: 048
  2. DILTIAZ [Concomitant]
  3. ALBUTEROL [Concomitant]
  4. FUROSEMIDE [Concomitant]
  5. KLOR-CON [Concomitant]
  6. LISINIOPRIL [Concomitant]
  7. ADVAIR HFA [Concomitant]
  8. DILTIAZEM [Concomitant]
  9. ZESTRIL [Concomitant]
  10. MECAVOR [Concomitant]
  11. K-DUR [Concomitant]
  12. NITROGLYCERIN [Concomitant]
  13. COUMADIN [Concomitant]
  14. FLUCONAZOLE [Concomitant]
  15. VERAPAMIL [Concomitant]
  16. ACTONEL [Concomitant]
  17. PROAIR HFA [Concomitant]
  18. SPIRIVA [Concomitant]
  19. MEDROL [Concomitant]
  20. VENTOLIN [Concomitant]
  21. FOLIC ACID [Concomitant]

REACTIONS (13)
  - ANGER [None]
  - ANHEDONIA [None]
  - ANXIETY [None]
  - ATRIAL FIBRILLATION [None]
  - HEART RATE IRREGULAR [None]
  - INJURY [None]
  - NAUSEA [None]
  - OEDEMA PERIPHERAL [None]
  - PAIN [None]
  - PALPITATIONS [None]
  - PULMONARY OEDEMA [None]
  - THERAPEUTIC AGENT TOXICITY [None]
  - UNEVALUABLE EVENT [None]
